FAERS Safety Report 10219309 (Version 1)
Quarter: 2014Q2

REPORT INFORMATION
  Report Type: Spontaneous
  Country: US (occurrence: None)
  Receive Date: 20140604
  Receipt Date: 20140604
  Transmission Date: 20141212
  Serious: No
  Sender: FDA-Public Use
  Company Number: None

PATIENT
  Age: 51 Year
  Sex: Male

DRUGS (1)
  1. CIMZIA 200MG PFS 2/PKG [Suspect]
     Indication: RHEUMATOID ARTHRITIS
     Dosage: 400 MG, EVERY 2 WEEKS, SUBCUTANEIOUS
     Route: 058
     Dates: start: 20140407, end: 20140508

REACTIONS (1)
  - Rash [None]
